FAERS Safety Report 18356804 (Version 1)
Quarter: 2020Q4

REPORT INFORMATION
  Report Type: Spontaneous
  Country: FR (occurrence: FR)
  Receive Date: 20201007
  Receipt Date: 20201007
  Transmission Date: 20210114
  Serious: Yes (Hospitalization)
  Sender: FDA-Public Use
  Company Number: FR-JNJFOC-20200949328

PATIENT
  Age: 89 Year
  Sex: Female
  Weight: 95 kg

DRUGS (10)
  1. DUROGESIC [Suspect]
     Active Substance: FENTANYL
     Indication: PAIN
     Route: 062
     Dates: start: 20181114, end: 20181116
  2. LASILIX [Concomitant]
     Active Substance: FUROSEMIDE
  3. FUMAFER [Concomitant]
     Active Substance: FERROUS FUMARATE
  4. LANSOPRAZOLE. [Concomitant]
     Active Substance: LANSOPRAZOLE
  5. ALLOPURINOL. [Concomitant]
     Active Substance: ALLOPURINOL
  6. BISOPROLOL [Concomitant]
     Active Substance: BISOPROLOL
  7. TRILEPTAL [Concomitant]
     Active Substance: OXCARBAZEPINE
  8. XANAX [Concomitant]
     Active Substance: ALPRAZOLAM
  9. COUMADINE [Concomitant]
     Active Substance: WARFARIN SODIUM
  10. LASILIX [Concomitant]
     Active Substance: FUROSEMIDE

REACTIONS (6)
  - Hypotension [Recovered/Resolved]
  - Constipation [Recovered/Resolved]
  - Bladder dilatation [Recovered/Resolved]
  - Fall [Recovered/Resolved]
  - Confusional state [Recovered/Resolved]
  - Somnolence [Recovered/Resolved]

NARRATIVE: CASE EVENT DATE: 20181114
